FAERS Safety Report 11294679 (Version 1)
Quarter: 2015Q3

REPORT INFORMATION
  Report Type: Report from Study
  Country: ZA (occurrence: ZA)
  Receive Date: 20150723
  Receipt Date: 20150723
  Transmission Date: 20151125
  Serious: Yes (Death, Hospitalization, Other)
  Sender: FDA-Public Use
  Company Number: PHHY2013ZA155416

PATIENT
  Age: 83 Year
  Sex: Female

DRUGS (3)
  1. ACLASTA [Suspect]
     Active Substance: ZOLEDRONIC ACID
     Dosage: 5 MG/100ML
     Route: 041
     Dates: start: 201407
  2. ACLASTA [Suspect]
     Active Substance: ZOLEDRONIC ACID
     Dosage: 5 MG/100ML
     Route: 041
     Dates: start: 201306
  3. ACLASTA [Suspect]
     Active Substance: ZOLEDRONIC ACID
     Indication: OSTEOPOROSIS
     Dosage: 5 MG/100ML
     Route: 041
     Dates: start: 201202

REACTIONS (5)
  - Multi-organ failure [Unknown]
  - Osteopenia [Unknown]
  - Drug ineffective [Unknown]
  - Pneumonia [Fatal]
  - Bone density decreased [Unknown]

NARRATIVE: CASE EVENT DATE: 20130620
